FAERS Safety Report 24408589 (Version 3)
Quarter: 2025Q3

REPORT INFORMATION
  Report Type: Report from Study
  Country: CA (occurrence: CA)
  Receive Date: 20241007
  Receipt Date: 20250803
  Transmission Date: 20251021
  Serious: Yes (Other)
  Sender: ALEXION PHARMACEUTICALS
  Company Number: CA-AstraZeneca-CH-00711899A

PATIENT
  Age: 17 Year
  Sex: Female

DRUGS (9)
  1. ULTOMIRIS [Suspect]
     Active Substance: RAVULIZUMAB-CWVZ
     Indication: Paroxysmal nocturnal haemoglobinuria
     Dates: start: 20230210, end: 20230210
  2. ULTOMIRIS [Suspect]
     Active Substance: RAVULIZUMAB-CWVZ
  3. ULTOMIRIS [Suspect]
     Active Substance: RAVULIZUMAB-CWVZ
     Dosage: 3300 MILLIGRAM, Q8W
     Dates: start: 20230424
  4. GRAVOL [Concomitant]
     Active Substance: DIMENHYDRINATE
     Indication: Nausea
  5. GRAVOL [Concomitant]
     Active Substance: DIMENHYDRINATE
     Indication: Vomiting
  6. TEMPRA [Concomitant]
     Active Substance: ACETAMINOPHEN
     Indication: Pyrexia
  7. SYMBICORT [Concomitant]
     Active Substance: BUDESONIDE\FORMOTEROL FUMARATE DIHYDRATE
     Route: 065
  8. VENTOLIN [Concomitant]
     Active Substance: ALBUTEROL SULFATE
     Route: 065
  9. PENICILLIN [Concomitant]
     Active Substance: PENICILLIN
     Indication: Prophylaxis
     Route: 065

REACTIONS (10)
  - Haemolysis [Unknown]
  - Upper respiratory tract infection [Unknown]
  - Red blood cell count decreased [Unknown]
  - Haematocrit decreased [Unknown]
  - Basophil count increased [Unknown]
  - Reticulocyte count increased [Unknown]
  - Haemoglobin decreased [Unknown]
  - Blood chloride increased [Unknown]
  - Mean cell haemoglobin increased [Unknown]
  - Mean cell volume increased [Unknown]
